FAERS Safety Report 13875186 (Version 2)
Quarter: 2017Q3

REPORT INFORMATION
  Report Type: Spontaneous
  Country: US (occurrence: US)
  Receive Date: 20170816
  Receipt Date: 20170927
  Transmission Date: 20171127
  Serious: Yes (Other)
  Sender: FDA-Public Use
  Company Number: US-BAUSCH-BL-2017-024016

PATIENT
  Age: 70 Year
  Sex: Male
  Weight: 74.91 kg

DRUGS (2)
  1. LIALDA [Concomitant]
     Active Substance: MESALAMINE
     Indication: COLITIS ULCERATIVE
     Dosage: THREE TIMES A DAY AND FOUR TIMES A DAY ALTERNATIVELY
     Route: 048
  2. UCERIS [Suspect]
     Active Substance: BUDESONIDE
     Indication: COLITIS ULCERATIVE
     Dosage: AS DIRECTED, MAY, JUNE AND JULY OF 2016, FOR 90 DAYS. ONE TABLET DAILY.
     Route: 048
     Dates: start: 201605

REACTIONS (3)
  - Levator syndrome [Recovering/Resolving]
  - Drug effect incomplete [Recovered/Resolved]
  - Colitis ulcerative [Recovering/Resolving]

NARRATIVE: CASE EVENT DATE: 201706
